FAERS Safety Report 5268185-5 (Version None)
Quarter: 2007Q1

REPORT INFORMATION
  Report Type: 
  Country: None (occurrence: None)
  Receive Date: 20070316
  Receipt Date: 20070316
  Transmission Date: 20070707
  Serious: Yes (Hospitalization)
  Sender: FDA-Public Use
  Company Number: None

PATIENT
  Sex: Male
  Weight: 69.8539 kg

DRUGS (5)
  1. OSI-774 (ERLOTINIB) 150MG - OSI PHARMACEUTICALS [Suspect]
     Indication: NON-SMALL CELL LUNG CANCER RECURRENT
     Dosage: 150MG PO DAILY
     Route: 048
     Dates: start: 20070212
  2. PREVACID [Concomitant]
  3. HYDROCODONE [Concomitant]
  4. ALBUTEROL [Concomitant]
  5. LASIX [Concomitant]

REACTIONS (16)
  - ASTHENIA [None]
  - BLOOD PRESSURE DECREASED [None]
  - DECREASED APPETITE [None]
  - DEHYDRATION [None]
  - DIZZINESS [None]
  - FAILURE TO THRIVE [None]
  - FATIGUE [None]
  - NAUSEA [None]
  - NUTRITIONAL CONDITION ABNORMAL [None]
  - ORAL INTAKE REDUCED [None]
  - PARONYCHIA [None]
  - PERFORMANCE STATUS DECREASED [None]
  - RENAL IMPAIRMENT [None]
  - TOOTH LOSS [None]
  - VOMITING [None]
  - WEIGHT DECREASED [None]
